FAERS Safety Report 8196688-2 (Version None)
Quarter: 2012Q1

REPORT INFORMATION
  Report Type: 
  Country: None (occurrence: None)
  Receive Date: 20120309
  Receipt Date: 20120229
  Transmission Date: 20120608
  Serious: Yes (Hospitalization, Other)
  Sender: FDA-Public Use
  Company Number: US-BAYER-2011-040534

PATIENT
  Age: 17 Year
  Sex: Female
  Weight: 95.238 kg

DRUGS (4)
  1. YAZ [Suspect]
     Indication: CONTRACEPTION
     Dosage: UNK
     Dates: start: 20070101, end: 20080101
  2. NEXIUM [Concomitant]
     Dosage: 40 MG, DAILY
     Route: 048
  3. YAZ [Suspect]
     Indication: PREMENSTRUAL SYNDROME
  4. AMLODIPINE [Concomitant]
     Dosage: 5 MG, DAILY
     Route: 048

REACTIONS (11)
  - INJURY [None]
  - EMOTIONAL DISTRESS [None]
  - CHOLELITHIASIS [None]
  - CHOLECYSTITIS CHRONIC [None]
  - BILIARY DYSKINESIA [None]
  - DISCOMFORT [None]
  - ABDOMINAL PAIN [None]
  - PAIN [None]
  - GALLBLADDER DISORDER [None]
  - ANXIETY [None]
  - GENERAL PHYSICAL HEALTH DETERIORATION [None]
